FAERS Safety Report 9701896 (Version 1)
Quarter: 2013Q4

REPORT INFORMATION
  Report Type: Spontaneous
  Country: DE (occurrence: DE)
  Receive Date: 20131121
  Receipt Date: 20131121
  Transmission Date: 20140711
  Serious: Yes (Hospitalization, Disabling)
  Sender: FDA-Public Use
  Company Number: DE-TEVA-444638GER

PATIENT
  Age: 21 Year
  Sex: Female

DRUGS (2)
  1. DICLOFENAC [Suspect]
     Indication: BACK PAIN
     Route: 065
  2. TETRAZEPAM [Concomitant]
     Indication: BACK PAIN
     Route: 065

REACTIONS (2)
  - Porphyria acute [Recovering/Resolving]
  - Aphasia [Recovering/Resolving]
